FAERS Safety Report 10359412 (Version 1)
Quarter: 2014Q3

REPORT INFORMATION
  Report Type: Spontaneous
  Country: US (occurrence: None)
  Receive Date: 20140731
  Receipt Date: 20140731
  Transmission Date: 20150326
  Serious: No
  Sender: FDA-Public Use
  Company Number: None

PATIENT
  Age: 5 Year
  Sex: Male
  Weight: 19.1 kg

DRUGS (1)
  1. TOPAMAX [Suspect]
     Active Substance: TOPIRAMATE
     Dosage: 2 PILLS 8 AM?3 PILLS 8 PM
     Route: 048

REACTIONS (2)
  - Product substitution issue [None]
  - Drug effect decreased [None]

NARRATIVE: CASE EVENT DATE: 20121115
